FAERS Safety Report 12939775 (Version 1)
Quarter: 2016Q4

REPORT INFORMATION
  Report Type: Spontaneous
  Country: US (occurrence: US)
  Receive Date: 20161115
  Receipt Date: 20161115
  Transmission Date: 20170207
  Serious: No
  Sender: FDA-Public Use
  Company Number: None

PATIENT
  Age: 8 Year

DRUGS (2)
  1. AMITRIPTYLINE HCL AMITRIPTYLINE [Suspect]
     Active Substance: AMITRIPTYLINE
     Route: 048
  2. AMITRIPTYLINE HCL  AMITRIPTYLINE [Suspect]
     Active Substance: AMITRIPTYLINE
     Route: 048

REACTIONS (5)
  - Somnolence [None]
  - Incorrect dose administered [None]
  - Headache [None]
  - Transcription medication error [None]
  - Drug dispensing error [None]
